FAERS Safety Report 6979405-0 (Version None)
Quarter: 2010Q3

REPORT INFORMATION
  Report Type: 
  Country: None (occurrence: None)
  Receive Date: 20100913
  Receipt Date: 20100902
  Transmission Date: 20110219
  Serious: Yes (Hospitalization)
  Sender: FDA-Public Use
  Company Number: TW-BAXTER-2010BH022955

PATIENT
  Sex: Female

DRUGS (6)
  1. DIANEAL [Suspect]
     Indication: PERITONEAL DIALYSIS
     Route: 033
     Dates: start: 20051201
  2. DIANEAL [Suspect]
     Route: 033
     Dates: start: 20051201
  3. DIANEAL [Suspect]
     Indication: PERITONEAL DIALYSIS
     Route: 033
     Dates: start: 20051201
  4. DIANEAL [Suspect]
     Route: 033
     Dates: start: 20051201
  5. EXTRANEAL [Suspect]
     Indication: PERITONEAL DIALYSIS
     Route: 033
     Dates: start: 20051201
  6. EXTRANEAL [Suspect]
     Route: 033
     Dates: start: 20051201

REACTIONS (1)
  - FUNGAL PERITONITIS [None]
